FAERS Safety Report 15779488 (Version 5)
Quarter: 2019Q3

REPORT INFORMATION
  Report Type: Report from Study
  Country: None (occurrence: PT)
  Receive Date: 20190101
  Receipt Date: 20190724
  Transmission Date: 20191004
  Serious: Yes (Hospitalization, Other)
  Sender: FDA-Public Use
  Company Number: PT-ABBVIE-18K-130-2607662-00

PATIENT
  Sex: Female

DRUGS (3)
  1. HUMIRA [Suspect]
     Active Substance: ADALIMUMAB
     Indication: RHEUMATOID ARTHRITIS
     Route: 058
     Dates: start: 20120801
  2. HUMIRA [Suspect]
     Active Substance: ADALIMUMAB
     Route: 058
     Dates: start: 20190109, end: 20190320
  3. HUMIRA [Suspect]
     Active Substance: ADALIMUMAB
     Indication: RHEUMATOID ARTHRITIS
     Route: 058
     Dates: end: 20181212

REACTIONS (11)
  - Arthralgia [Recovering/Resolving]
  - Macular hole [Recovered/Resolved]
  - Spinal fracture [Unknown]
  - Device dislocation [Recovered/Resolved]
  - Pain in extremity [Recovering/Resolving]
  - Surgical failure [Unknown]
  - Rheumatoid arthritis [Not Recovered/Not Resolved]
  - Spinal pain [Recovering/Resolving]
  - Urinary tract infection [Recovered/Resolved]
  - Device breakage [Unknown]
  - Blood test abnormal [Unknown]

NARRATIVE: CASE EVENT DATE: 2017
